FAERS Safety Report 10997016 (Version 1)
Quarter: 2015Q1

REPORT INFORMATION
  Report Type: Spontaneous
  Country: US (occurrence: None)
  Receive Date: 20150331
  Receipt Date: 20150331
  Transmission Date: 20150721
  Serious: Yes (Hospitalization)
  Sender: FDA-Public Use
  Company Number: 2014-06931

PATIENT
  Age: 73 Year
  Sex: Male
  Weight: 92 kg

DRUGS (27)
  1. CABAZITAXEL [Suspect]
     Active Substance: CABAZITAXEL
     Indication: PROSTATE CANCER
     Dosage: 54 MG, 1 IN 3 WK
     Route: 042
     Dates: start: 20131001
  2. VOLTAREN /00372301/ (DICLOFENAC) [Concomitant]
  3. DIGOXIN (DIGOXIN) [Concomitant]
     Active Substance: DIGOXIN
  4. FUROSEMIDE (FUROSEMIDE) [Concomitant]
     Active Substance: FUROSEMIDE
  5. METFORMIN [Concomitant]
     Active Substance: METFORMIN HYDROCHLORIDE
  6. NPH INSULIN (ISOPHANE INSULIN) [Concomitant]
  7. ZANTAC [Concomitant]
     Active Substance: RANITIDINE HYDROCHLORIDE
  8. ASPIRIN. [Concomitant]
     Active Substance: ASPIRIN
  9. KEFLEX /00145501/ (CEFALEXIN) [Concomitant]
  10. LEVOTHYROXINE (LEVOTHYROXINE) [Concomitant]
     Active Substance: LEVOTHYROXINE
  11. NOVOLIN (INSULIN HUMAN, INSULIN HUMAN INJECTION, ISOPHANE) [Concomitant]
  12. CUSTIRSEN [Suspect]
     Active Substance: CUSTIRSEN
     Indication: PROSTATE CANCER
  13. CINNAMON /01647501/ (CINNAMOMUM VERUM) [Concomitant]
     Active Substance: CINNAMON
  14. OMEPRAZOLE (OMEPRAZOLE) [Concomitant]
     Active Substance: OMEPRAZOLE
  15. PREDNISONE (PREDNISONE) [Concomitant]
     Active Substance: PREDNISONE
  16. HYDROCODONE BITARTRATE AND ACETAMINOPHEN [Suspect]
     Active Substance: ACETAMINOPHEN\HYDROCODONE BITARTRATE
     Indication: PRODUCT USED FOR UNKNOWN INDICATION
     Route: 048
     Dates: start: 20130923
  17. TYLENOL /000200001/ (PARACETAMOL) [Concomitant]
  18. CALCIUM VITAMIN D (CALCIUM, COLECALCIFEROL) [Concomitant]
  19. CURCUMEN (CURCUMA ZANTHORRHIZA) [Concomitant]
  20. PROCRIT /00909301/ (ERYTHROPOIETIN) [Concomitant]
  21. SIMVASTATIN (SIMVASTATIN) [Concomitant]
     Active Substance: SIMVASTATIN
  22. MAGNESIUM OXIDE (MAGNESIUM OXIDE) [Concomitant]
     Active Substance: MAGNESIUM OXIDE
  23. ZOFRAN /00955301/ (ONDANSETRON) [Concomitant]
  24. VITAMIN B12 /00056201/ (CYANOCOBALAMIN) [Concomitant]
  25. GINGER /01646602/ (ZINGIBER OFFICINALE RHIZOME) [Concomitant]
  26. SALINE /00075401/ (SODIUM CHLORIDE) [Concomitant]
  27. ELIGARD (LEUPRORELIN ACETATE) [Concomitant]

REACTIONS (2)
  - Dehydration [None]
  - Constipation [None]

NARRATIVE: CASE EVENT DATE: 20140204
